FAERS Safety Report 9605635 (Version 2)
Quarter: 2015Q1

REPORT INFORMATION
  Report Type: Report from Study
  Country: SE (occurrence: SE)
  Receive Date: 20131008
  Receipt Date: 20150213
  Transmission Date: 20150721
  Serious: Yes (Hospitalization, Other)
  Sender: FDA-Public Use
  Company Number: SE-ROCHE-1285107

PATIENT
  Sex: Female

DRUGS (7)
  1. RANIBIZUMAB [Suspect]
     Active Substance: RANIBIZUMAB
     Indication: AGE-RELATED MACULAR DEGENERATION
     Route: 050
     Dates: start: 20110926
  2. WARAN [Concomitant]
     Active Substance: WARFARIN SODIUM
     Route: 065
     Dates: start: 20120721
  3. RANIBIZUMAB [Suspect]
     Active Substance: RANIBIZUMAB
     Route: 050
     Dates: start: 20130202
  4. FURIX [Concomitant]
     Active Substance: FUROSEMIDE
     Route: 065
     Dates: start: 20120602
  5. DIGOXIN. [Concomitant]
     Active Substance: DIGOXIN
     Route: 065
     Dates: start: 20120602
  6. SIMVASTATIN. [Concomitant]
     Active Substance: SIMVASTATIN
  7. OMEPRAZOLE. [Concomitant]
     Active Substance: OMEPRAZOLE
     Route: 065
     Dates: start: 20120602

REACTIONS (6)
  - Hip fracture [Recovered/Resolved]
  - Radius fracture [Recovered/Resolved]
  - Joint dislocation [Unknown]
  - Fall [Unknown]
  - Radius fracture [Unknown]
  - Acetabulum fracture [Unknown]

NARRATIVE: CASE EVENT DATE: 20130424
